FAERS Safety Report 8068794-4 (Version None)
Quarter: 2012Q1

REPORT INFORMATION
  Report Type: 
  Country: None (occurrence: None)
  Receive Date: 20120124
  Receipt Date: 20120111
  Transmission Date: 20120608
  Serious: Yes (Other)
  Sender: FDA-Public Use
  Company Number: ES-MYLANLABS-2012S1001065

PATIENT
  Age: 25 Year
  Sex: Male

DRUGS (4)
  1. VANCOMYCIN [Concomitant]
     Indication: CLOSTRIDIAL INFECTION
     Route: 048
  2. IDARUBICIN HCL [Concomitant]
     Indication: ACUTE PROMYELOCYTIC LEUKAEMIA
     Dosage: 12 MG/M2 DAYS 2, 4, 6 AND 8
     Route: 065
  3. PIPERACILLIN AND TAZOBACTAM [Concomitant]
     Route: 051
  4. TRETINOIN [Suspect]
     Indication: ACUTE PROMYELOCYTIC LEUKAEMIA
     Dosage: STANDARD INDUCTION CHEMOTHERAPY WITH 45 MG/M2/DAY
     Route: 065

REACTIONS (1)
  - BONE MARROW NECROSIS [None]
